FAERS Safety Report 25575684 (Version 1)
Quarter: 2025Q3

REPORT INFORMATION
  Report Type: Spontaneous
  Country: EU (occurrence: EU)
  Receive Date: 20250718
  Receipt Date: 20250718
  Transmission Date: 20251021
  Serious: Yes (Other)
  Sender: ROVIPHARM SAS
  Company Number: None

PATIENT
  Age: 32 Year
  Sex: Male
  Weight: 74 kg

DRUGS (4)
  1. RISPERIDONE [Suspect]
     Active Substance: RISPERIDONE
     Indication: Psychotic disorder
     Route: 030
  2. RISPERIDONE [Suspect]
     Active Substance: RISPERIDONE
     Indication: Product used for unknown indication
     Dosage: 1 CADA 24 HORAS
     Route: 048
     Dates: start: 20250305
  3. BIKTARVY 50 MG/200 MG/25 MG COMPRIMIDOS RECUBIERTOS CON PELICULA, 30 c [Concomitant]
     Indication: HIV infection
  4. Lormetazepam 1 mg 30 comprimidos [Concomitant]

REACTIONS (1)
  - Dependence [Not Recovered/Not Resolved]

NARRATIVE: CASE EVENT DATE: 20250601
